FAERS Safety Report 7157026-7 (Version None)
Quarter: 2010Q4

REPORT INFORMATION
  Report Type: 
  Country: None (occurrence: None)
  Receive Date: 20101129
  Receipt Date: 20101111
  Transmission Date: 20110411
  Serious: Yes (Hospitalization)
  Sender: FDA-Public Use
  Company Number: 2010P1002456

PATIENT
  Age: 84 Year
  Sex: Male

DRUGS (7)
  1. WARFARIN SODIUM [Suspect]
     Indication: CARDIAC OPERATION
     Dosage: 2.5 MG; QD; PO
     Route: 048
     Dates: start: 20100801, end: 20101001
  2. WARFARIN SODIUM [Suspect]
     Indication: HEART RATE INCREASED
     Dosage: 2.5 MG; QD; PO
     Route: 048
     Dates: start: 20100801, end: 20101001
  3. WARFARIN SODIUM [Suspect]
     Indication: CARDIAC OPERATION
     Dosage: ; PO
     Route: 048
     Dates: start: 20100801, end: 20101001
  4. WARFARIN SODIUM [Suspect]
     Indication: HEART RATE INCREASED
     Dosage: ; PO
     Route: 048
     Dates: start: 20100801, end: 20101001
  5. PLAVIX [Concomitant]
  6. AMARYL [Concomitant]
  7. METOPROLOL TARTRATE [Concomitant]

REACTIONS (10)
  - DRUG INEFFECTIVE [None]
  - DRUG INTERACTION [None]
  - FALL [None]
  - HALLUCINATION [None]
  - HEAD INJURY [None]
  - LYME DISEASE [None]
  - SKIN EXFOLIATION [None]
  - SLEEP TALKING [None]
  - SYNCOPE [None]
  - WEIGHT DECREASED [None]
